FAERS Safety Report 25705116 (Version 1)
Quarter: 2025Q3

REPORT INFORMATION
  Report Type: Spontaneous
  Country: CN (occurrence: CN)
  Receive Date: 20250820
  Receipt Date: 20250820
  Transmission Date: 20251020
  Serious: Yes (Hospitalization, Other)
  Sender: GLAXOSMITHKLINE
  Company Number: CN-GSK-CN2025CHI102979

PATIENT
  Age: 34 Year
  Sex: Female
  Weight: 50.4 kg

DRUGS (1)
  1. LAMOTRIGINE [Suspect]
     Active Substance: LAMOTRIGINE
     Indication: Affective disorder
     Dosage: 25 MG, TID

REACTIONS (3)
  - Drug eruption [Not Recovered/Not Resolved]
  - Affective disorder [Not Recovered/Not Resolved]
  - Condition aggravated [Not Recovered/Not Resolved]

NARRATIVE: CASE EVENT DATE: 20250802
